FAERS Safety Report 4868189-8 (Version None)
Quarter: 2005Q4

REPORT INFORMATION
  Report Type: 
  Country: None (occurrence: None)
  Receive Date: 20051229
  Receipt Date: 20051220
  Transmission Date: 20060501
  Serious: Yes (Death, Other)
  Sender: FDA-Public Use
  Company Number: GB-BRISTOL-MYERS SQUIBB COMPANY-13224639

PATIENT

DRUGS (2)
  1. CARBOPLATIN [Suspect]
     Indication: OVARIAN DYSGERMINOMA STAGE UNSPECIFIED
  2. ETOPOSIDE [Suspect]
     Indication: OVARIAN DYSGERMINOMA STAGE UNSPECIFIED

REACTIONS (1)
  - LUNG ADENOCARCINOMA [None]
